FAERS Safety Report 23078180 (Version 1)
Quarter: 2023Q4

REPORT INFORMATION
  Report Type: Spontaneous
  Country: FR (occurrence: FR)
  Receive Date: 20231018
  Receipt Date: 20231018
  Transmission Date: 20240110
  Serious: Yes (Hospitalization, Other)
  Sender: FDA-Public Use
  Company Number: None

PATIENT
  Age: 34 Year
  Sex: Female

DRUGS (16)
  1. KETOPROFEN [Suspect]
     Active Substance: KETOPROFEN
     Indication: Analgesic therapy
     Dosage: 200 MG, QD?50MG QID
     Route: 048
  2. KETOPROFEN [Suspect]
     Active Substance: KETOPROFEN
     Route: 048
  3. ASPIRIN [Suspect]
     Active Substance: ASPIRIN
     Indication: Product used for unknown indication
     Dosage: UNK
     Route: 065
  4. UNSPECIFIED INGREDIENT [Suspect]
     Active Substance: UNSPECIFIED INGREDIENT
     Dosage: 300 MG, TOTAL
     Route: 008
  5. LIDOCAINE [Suspect]
     Active Substance: LIDOCAINE
     Indication: Anaesthesia
     Dosage: 15 ML OF LIDOCAINE 20MG/ML WITH ADRENALIN
  6. ACETAMINOPHEN [Suspect]
     Active Substance: ACETAMINOPHEN
     Indication: Analgesic therapy
     Dosage: 4 G, QID
  7. ACETAMINOPHEN [Suspect]
     Active Substance: ACETAMINOPHEN
     Route: 048
  8. ADRENALIN [Suspect]
     Active Substance: EPINEPHRINE
     Indication: Anaesthesia
     Dosage: 15 ML OF LIDOCAINE 20MG/ML WITH ADRENALIN
  9. ADRENALIN [Suspect]
     Active Substance: EPINEPHRINE
     Dosage: 1DF
  10. ENOXAPARIN SODIUM [Suspect]
     Active Substance: ENOXAPARIN SODIUM
     Indication: Thrombosis prophylaxis
     Dosage: DOSE DESCRIPTION : 40 MG,QD?1 TIMES A DAY
     Route: 058
  11. NEFOPAM [Suspect]
     Active Substance: NEFOPAM
     Indication: Anaesthesia
     Dosage: DOSE DESCRIPTION : 40 MG,QID?4 TIMES A DAY
     Route: 048
  12. SUFENTANIL [Suspect]
     Active Substance: SUFENTANIL
     Indication: Anaesthesia
     Dosage: 20 ML OF A SOLUTION OF 1 MG/ML ROPIVACAINE AND 0.25 ??G/ML SUFENTANIL
  13. SUFENTANIL [Suspect]
     Active Substance: SUFENTANIL
     Dosage: 5UG, UNK
  14. ROPIVACAINE [Suspect]
     Active Substance: ROPIVACAINE
     Indication: Epidural analgesia
     Dosage: 20ML SOL OF 1MG/ML ROPIVACAINE AND 0.25MICROG/ML SUFENTANIL AND 8ML BOLUS OF SAME??..
  15. ROPIVACAINE [Suspect]
     Active Substance: ROPIVACAINE
     Indication: Pain
  16. MORPHINE [Suspect]
     Active Substance: MORPHINE
     Indication: Analgesic therapy
     Dosage: 2 MG, QID
     Route: 008

REACTIONS (12)
  - Neuropathy peripheral [Recovered/Resolved]
  - Peripheral nerve injury [Recovered/Resolved]
  - Gait disturbance [Recovered/Resolved]
  - Live birth [Unknown]
  - Epidural analgesia [Recovering/Resolving]
  - Epistaxis [Unknown]
  - Epidural haemorrhage [Recovered/Resolved]
  - Paraesthesia [Recovered/Resolved]
  - Maternal exposure during pregnancy [Recovered/Resolved]
  - Nervous system disorder [Recovered/Resolved]
  - Spinal epidural haemorrhage [Recovered/Resolved]
  - Foetal heart rate abnormal [Recovering/Resolving]
